FAERS Safety Report 7927868-6 (Version None)
Quarter: 2011Q4

REPORT INFORMATION
  Report Type: 
  Country: None (occurrence: None)
  Receive Date: 20111118
  Receipt Date: 20111118
  Transmission Date: 20120403
  Serious: No
  Sender: FDA-Public Use
  Company Number: None

PATIENT
  Age: 63 Year
  Sex: Female
  Weight: 45.359 kg

DRUGS (1)
  1. BONIVA [Suspect]
     Indication: BONE DENSITY DECREASED
     Dosage: 1 TAB
     Dates: start: 20090114, end: 20111014

REACTIONS (6)
  - ARTHRALGIA [None]
  - BONE DENSITY DECREASED [None]
  - BACK PAIN [None]
  - MYALGIA [None]
  - MUSCLE SPASMS [None]
  - GROIN PAIN [None]
